FAERS Safety Report 8305901-X (Version None)
Quarter: 2012Q2

REPORT INFORMATION
  Report Type: 
  Country: None (occurrence: None)
  Receive Date: 20120418
  Receipt Date: 20120410
  Transmission Date: 20120825
  Serious: Yes (Other)
  Sender: FDA-Public Use
  Company Number: DAV-AE-ALP-12-18

PATIENT
  Age: 68 Year
  Sex: Female

DRUGS (6)
  1. TRIAZOLAM [Concomitant]
  2. ALPRAZOLAM [Suspect]
     Indication: ANXIETY
     Dosage: UNKNOWN
  3. ALPRAZOLAM [Suspect]
     Indication: INSOMNIA
     Dosage: UNKNOWN
  4. ALPRAZOLAM [Suspect]
     Indication: DEPRESSION
     Dosage: UNKNOWN
  5. ZOLPIDEM [Concomitant]
  6. PAROXETINE [Concomitant]

REACTIONS (1)
  - BLEPHAROSPASM [None]
